FAERS Safety Report 13942896 (Version 2)
Quarter: 2017Q4

REPORT INFORMATION
  Report Type: Spontaneous
  Country: FR (occurrence: FR)
  Receive Date: 20170906
  Receipt Date: 20171115
  Transmission Date: 20180320
  Serious: Yes (Other)
  Sender: FDA-Public Use
  Company Number: FR-MERCK KGAA-2025577

PATIENT
  Age: 64 Year
  Sex: Female

DRUGS (1)
  1. NOVOTHYROX [Suspect]
     Active Substance: LEVOTHYROXINE SODIUM
     Indication: PRODUCT USED FOR UNKNOWN INDICATION

REACTIONS (17)
  - Back pain [None]
  - Constipation [None]
  - Blood thyroid stimulating hormone abnormal [None]
  - Disturbance in attention [None]
  - Joint swelling [None]
  - Hot flush [None]
  - Amnesia [None]
  - Abdominal pain [None]
  - Weight increased [None]
  - Vertigo [None]
  - Malaise [None]
  - Depression [None]
  - Palpitations [None]
  - Glaucoma [None]
  - Fatigue [None]
  - Hyperhidrosis [None]
  - Nausea [None]

NARRATIVE: CASE EVENT DATE: 201703
